FAERS Safety Report 4992354-2 (Version None)
Quarter: 2006Q2

REPORT INFORMATION
  Report Type: 
  Country: None (occurrence: None)
  Receive Date: 20060502
  Receipt Date: 20060424
  Transmission Date: 20061013
  Serious: Yes (Other)
  Sender: FDA-Public Use
  Company Number: 163-20785-06020145

PATIENT
  Age: 33 Year
  Sex: Female

DRUGS (2)
  1. THALOMID [Suspect]
     Indication: MULTIPLE MYELOMA
     Dosage: 200 MG, DAILY, ORAL
     Route: 048
     Dates: start: 20051221
  2. DEO-PROVERA (MEDROXYPROGESTERONE ACETATE) (INJECTION) [Concomitant]

REACTIONS (1)
  - RENAL FAILURE CHRONIC [None]
